FAERS Safety Report 17810274 (Version 2)
Quarter: 2020Q3

REPORT INFORMATION
  Report Type: Report from Study
  Country: IT (occurrence: IT)
  Receive Date: 20200520
  Receipt Date: 20200702
  Transmission Date: 20201102
  Serious: Yes (Other)
  Sender: FDA-Public Use
  Company Number: IT-ACCORD-182667

PATIENT
  Age: 66 Year
  Sex: Female

DRUGS (4)
  1. GEMCITABINE. [Suspect]
     Active Substance: GEMCITABINE
     Indication: PANCREATIC NEOPLASM
     Dosage: SRENGTH: 1 G
     Route: 041
     Dates: start: 20200325, end: 20200429
  2. ABRAXANE [Concomitant]
     Active Substance: PACLITAXEL
     Indication: PANCREATIC NEOPLASM
     Dosage: STRENGTH: 5 MG/ML POWDER FOR SUSPENSION FOR INFUSION
     Route: 041
     Dates: start: 20200429
  3. LYRICA [Concomitant]
     Active Substance: PREGABALIN
     Route: 048
  4. PANTOPRAZOLE [Concomitant]
     Active Substance: PANTOPRAZOLE
     Dosage: STRENGTH: 20 MG
     Route: 048

REACTIONS (2)
  - Hyperpyrexia [Recovered/Resolved]
  - Chills [Recovered/Resolved]

NARRATIVE: CASE EVENT DATE: 20200429
